FAERS Safety Report 9324903 (Version 3)
Quarter: 2015Q2

REPORT INFORMATION
  Report Type: Report from Study
  Country: FR (occurrence: FR)
  Receive Date: 20130603
  Receipt Date: 20150626
  Transmission Date: 20150821
  Serious: Yes (Hospitalization)
  Sender: FDA-Public Use
  Company Number: FR-ACTELION-A-CH2013-83666

PATIENT
  Age: 26 Year
  Sex: Male
  Weight: 68 kg

DRUGS (2)
  1. RISPERIDONE. [Concomitant]
     Active Substance: RISPERIDONE
     Indication: PSYCHOTIC DISORDER
     Dosage: UNK
     Dates: start: 2010
  2. ZAVESCA [Suspect]
     Active Substance: MIGLUSTAT
     Indication: NIEMANN-PICK DISEASE
     Dosage: 200 MG, TID
     Route: 048
     Dates: start: 20101012, end: 20121217

REACTIONS (5)
  - Schizophrenia [Unknown]
  - Cerebellar syndrome [Unknown]
  - Gaze palsy [Unknown]
  - Treatment noncompliance [Unknown]
  - Hypotonia [Unknown]

NARRATIVE: CASE EVENT DATE: 201103
